FAERS Safety Report 21707821 (Version 1)
Quarter: 2022Q4

REPORT INFORMATION
  Report Type: Spontaneous
  Country: US (occurrence: US)
  Receive Date: 20221209
  Receipt Date: 20221209
  Transmission Date: 20230113
  Serious: Yes (Other)
  Sender: FDA-Public Use
  Company Number: US-MYLANLABS-2022M1137808

PATIENT
  Age: 25 Year
  Sex: Male

DRUGS (3)
  1. PREDNISONE [Suspect]
     Active Substance: PREDNISONE
     Indication: Chronic lymphocytic inflammation with pontine perivascular enhancement responsive to steroids
     Dosage: 80 MILLIGRAM, QD
     Route: 065
  2. PREDNISONE [Suspect]
     Active Substance: PREDNISONE
     Dosage: 30 MILLIGRAM, QD
     Route: 065
  3. CLADRIBINE [Suspect]
     Active Substance: CLADRIBINE
     Indication: Chronic lymphocytic inflammation with pontine perivascular enhancement responsive to steroids
     Dosage: 0.087 MILLIGRAM/KILOGRAM, OVER 2 HOURS ON 4 CONSECUTIVE DAYS
     Route: 042

REACTIONS (10)
  - Diplopia [Recovered/Resolved]
  - Rebound effect [Recovered/Resolved]
  - Weight increased [Recovering/Resolving]
  - Glucose tolerance impaired [Not Recovered/Not Resolved]
  - Bone density decreased [Unknown]
  - Tremor [Unknown]
  - Anxiety [Unknown]
  - Fatigue [Unknown]
  - Condition aggravated [Recovered/Resolved]
  - Off label use [Unknown]
